FAERS Safety Report 25878212 (Version 1)
Quarter: 2025Q4

REPORT INFORMATION
  Report Type: Spontaneous
  Country: KW (occurrence: KW)
  Receive Date: 20251003
  Receipt Date: 20251003
  Transmission Date: 20260117
  Serious: Yes (Other)
  Sender: RANBAXY
  Company Number: KW-SUN PHARMACEUTICAL INDUSTRIES INC-2025R1-529753

PATIENT
  Age: 16 Year
  Sex: Male

DRUGS (5)
  1. VINCRISTINE [Suspect]
     Active Substance: VINCRISTINE
     Indication: Chemotherapy
     Dosage: 1.5 MG/M2/DOSE = 2 MG/DOSE,, WEEKLY, 5 WEEKS, 5 DOSE
     Route: 042
     Dates: start: 20251207
  2. DEXAMETHASONE [Suspect]
     Active Substance: DEXAMETHASONE
     Indication: Chemotherapy
     Dosage: 6 MG/M2/DAY = 11 MG/DAY, DAILY, 4 WEEKS, 28 DOSE
     Route: 048
     Dates: start: 20231109
  3. METHOTREXATE [Suspect]
     Active Substance: METHOTREXATE
     Indication: Chemotherapy
     Dosage: 12 MILLIGRAM, ON DAYS 1, 8, AND 28, 4 WEEKS, 3 DOSES
     Route: 037
     Dates: start: 20231109
  4. DAUNORUBICIN [Suspect]
     Active Substance: DAUNORUBICIN
     Indication: Chemotherapy
     Dosage: 25 MG/M2/DOSE = 46.5 MG/DOSE, WEEKLY, 4 WEEKS , 4 DOSE
     Route: 042
     Dates: start: 20231109
  5. MERCAPTOPURINE [Suspect]
     Active Substance: MERCAPTOPURINE
     Indication: Chemotherapy
     Dosage: 75 MG/M2/DAY = 110 MG/DAY, DAILY,1 WEEK 7 DOSE
     Route: 048
     Dates: start: 20231109

REACTIONS (1)
  - Polyneuropathy [Recovering/Resolving]
